FAERS Safety Report 6750915-4 (Version None)
Quarter: 2010Q2

REPORT INFORMATION
  Report Type: 
  Country: None (occurrence: None)
  Receive Date: 20100602
  Receipt Date: 20100526
  Transmission Date: 20101027
  Serious: Yes (Hospitalization, Other)
  Sender: FDA-Public Use
  Company Number: PHHO2009US02157

PATIENT
  Sex: Male

DRUGS (15)
  1. CERTICAN [Suspect]
     Indication: LIVER TRANSPLANT
     Dosage: 0.5 MG, BID
     Route: 048
     Dates: start: 20031213, end: 20090205
  2. CERTICAN [Suspect]
     Dosage: 0.5 MG, BID
     Route: 048
     Dates: start: 20090207, end: 20090301
  3. CERTICAN [Suspect]
     Dosage: 0.5 MG, QD
     Route: 048
     Dates: start: 20090302, end: 20090302
  4. METOPROLOL TARTRATE [Suspect]
  5. BONIVA [Concomitant]
     Indication: OSTEOPOROSIS
     Dosage: 150 MG, QMO
     Route: 048
     Dates: start: 20080101
  6. COMPAZINE [Concomitant]
     Indication: NAUSEA
     Dosage: UNK
     Dates: start: 20081201
  7. GENGRAF [Concomitant]
     Indication: IMMUNOSUPPRESSION
     Dosage: UNK
     Dates: start: 19990105
  8. LASIX [Concomitant]
     Indication: OEDEMA
     Dosage: UNK
     Dates: start: 20081201
  9. LANTUS [Concomitant]
     Indication: DIABETES MELLITUS
     Dosage: UNK
     Dates: start: 20080720
  10. MULTI-VITAMIN [Concomitant]
     Indication: VITAMIN SUPPLEMENTATION
     Dosage: UNK
  11. NORVASC [Concomitant]
     Indication: HYPERTENSION
     Dosage: UNK
  12. ASACOL [Concomitant]
     Indication: COLITIS ULCERATIVE
     Dosage: UNK
  13. ALDACTONE [Concomitant]
     Indication: OEDEMA
     Dosage: UNK
  14. SYNTHROID [Concomitant]
     Indication: HYPOTHYROIDISM
     Dosage: UNK
  15. ACTIGALL [Concomitant]
     Indication: PROPHYLAXIS
     Dosage: UNK

REACTIONS (19)
  - ABSCESS DRAINAGE [None]
  - ASTHENIA [None]
  - ATRIAL FLUTTER [None]
  - CHOLANGIOGRAM [None]
  - CONFUSIONAL STATE [None]
  - DIARRHOEA [None]
  - ENTEROCOCCAL INFECTION [None]
  - FATIGUE [None]
  - GASTROINTESTINAL HAEMORRHAGE [None]
  - HEART RATE INCREASED [None]
  - HEPATIC VEIN STENOSIS [None]
  - HYPONATRAEMIA [None]
  - HYPOTENSION [None]
  - HYPOVOLAEMIA [None]
  - ILEUS [None]
  - LIVER ABSCESS [None]
  - PYREXIA [None]
  - SEPTIC SHOCK [None]
  - THROMBOCYTOPENIA [None]
